APPROVED DRUG PRODUCT: FEXOFENADINE HYDROCHLORIDE
Active Ingredient: FEXOFENADINE HYDROCHLORIDE
Strength: 180MG
Dosage Form/Route: TABLET;ORAL
Application: A076191 | Product #003
Applicant: BARR LABORATORIES INC
Approved: Aug 31, 2005 | RLD: No | RS: No | Type: DISCN